FAERS Safety Report 13991130 (Version 1)
Quarter: 2017Q3

REPORT INFORMATION
  Report Type: Spontaneous
  Country: US (occurrence: US)
  Receive Date: 20170920
  Receipt Date: 20170920
  Transmission Date: 20171128
  Serious: Yes (Other)
  Sender: FDA-Public Use
  Company Number: None

PATIENT
  Age: 54 Year
  Sex: Female
  Weight: 119.7 kg

DRUGS (1)
  1. DELVENLAFAXINE SUC [Suspect]
     Active Substance: DESVENLAFAXINE SUCCINATE
     Indication: DEPRESSION
     Route: 048
     Dates: start: 20170405, end: 20170630

REACTIONS (3)
  - Mood altered [None]
  - Depression [None]
  - Product substitution issue [None]

NARRATIVE: CASE EVENT DATE: 20170601
